FAERS Safety Report 14500108 (Version 1)
Quarter: 2018Q1

REPORT INFORMATION
  Report Type: Not Available
  Country: US (occurrence: US)
  Receive Date: 20180207
  Receipt Date: 20180207
  Transmission Date: 20180509
  Serious: No
  Sender: FDA-Public Use
  Company Number: US-FOUNDATIONCONSUMERHC-2017-US-014382

PATIENT
  Age: 39 Year
  Sex: Female
  Weight: 76.2 kg

DRUGS (5)
  1. METHYLPREDNISOLONE. [Suspect]
     Active Substance: METHYLPREDNISOLONE
     Dosage: METHYLPREDNISOLONE 4MG TAPER PACK (7,6,5,4,3,2,1)
     Route: 048
     Dates: start: 20171110
  2. TAKE ACTION [Suspect]
     Active Substance: LEVONORGESTREL
     Dosage: 1 TABLET X1 DOSE
     Route: 048
     Dates: start: 20171105, end: 20171105
  3. AMOXICILLIN. [Suspect]
     Active Substance: AMOXICILLIN
     Dosage: 500MG TID
     Route: 048
     Dates: start: 20171110, end: 20171117
  4. IBUPROFEN. [Suspect]
     Active Substance: IBUPROFEN
     Dosage: IBUPROFEN 600MG BID
     Route: 048
     Dates: start: 20171111
  5. HYDROCODONE BITARTRATE AND ACETAMINOPHEN [Suspect]
     Active Substance: ACETAMINOPHEN\HYDROCODONE BITARTRATE
     Dosage: HYDROCODONE/APAP BID FOR 1 DAY THEN STOP
     Route: 048
     Dates: start: 20171110, end: 20171110

REACTIONS (2)
  - Vaginal haemorrhage [Unknown]
  - Menstrual disorder [Recovered/Resolved]

NARRATIVE: CASE EVENT DATE: 20171116
